FAERS Safety Report 4575660-5 (Version None)
Quarter: 2005Q1

REPORT INFORMATION
  Report Type: 
  Country: None (occurrence: None)
  Receive Date: 20050209
  Receipt Date: 20050119
  Transmission Date: 20050727
  Serious: Yes (Other)
  Sender: FDA-Public Use
  Company Number: DE-GLAXOSMITHKLINE-D0045685A

PATIENT
  Age: 52 Year
  Sex: Female
  Weight: 66.4 kg

DRUGS (4)
  1. ZYBAN [Suspect]
     Indication: SMOKING CESSATION THERAPY
     Dosage: 150MG TWICE PER DAY
     Route: 048
     Dates: start: 20050114
  2. BETABION [Concomitant]
     Indication: VITAMIN B6 DEFICIENCY
     Dosage: 100MG TWICE PER DAY
     Route: 048
     Dates: start: 20050112
  3. DIAZEPAM [Concomitant]
     Route: 065
  4. VITAMIN B-12 [Concomitant]
     Indication: VITAMIN B12 DEFICIENCY
     Dosage: 1000UG PER DAY
     Route: 048
     Dates: start: 20050118

REACTIONS (1)
  - NEUTROPENIA [None]
